FAERS Safety Report 5500383-5 (Version None)
Quarter: 2007Q4

REPORT INFORMATION
  Report Type: 
  Country: None (occurrence: None)
  Receive Date: 20071024
  Receipt Date: 20071024
  Transmission Date: 20080405
  Serious: Yes (Hospitalization)
  Sender: FDA-Public Use
  Company Number: None

PATIENT
  Sex: Female
  Weight: 54 kg

DRUGS (4)
  1. FLUOROURACIL [Suspect]
     Dosage: 6300 MG
  2. CISPLATIN [Suspect]
     Dosage: 68 MG
  3. ERBITUX [Suspect]
     Dosage: 1125 MG
  4. ELLENCE [Suspect]
     Dosage: 42 MG

REACTIONS (1)
  - FEBRILE NEUTROPENIA [None]
